FAERS Safety Report 5434305-2 (Version None)
Quarter: 2007Q3

REPORT INFORMATION
  Report Type: 
  Country: None (occurrence: None)
  Receive Date: 20070831
  Receipt Date: 20070828
  Transmission Date: 20080115
  Serious: Yes (Other)
  Sender: FDA-Public Use
  Company Number: PHNU2007DE02977

PATIENT
  Age: 60 Year
  Sex: Female

DRUGS (1)
  1. GLEEVEC [Suspect]
     Indication: CHRONIC MYELOID LEUKAEMIA
     Dosage: 400 MG, QD
     Route: 048
     Dates: start: 20070201

REACTIONS (4)
  - EXCESSIVE GRANULATION TISSUE [None]
  - SKIN ATROPHY [None]
  - SKIN EROSION [None]
  - SKIN ULCER [None]
